FAERS Safety Report 8583364-7 (Version None)
Quarter: 2012Q3

REPORT INFORMATION
  Report Type: 
  Country: None (occurrence: None)
  Receive Date: 20120809
  Receipt Date: 20120807
  Transmission Date: 20120928
  Serious: Yes (Hospitalization, Other)
  Sender: FDA-Public Use
  Company Number: CA-ROCHE-782577

PATIENT
  Sex: Male
  Weight: 98.4 kg

DRUGS (20)
  1. CITALOPRAM HYDROBROMIDE [Concomitant]
  2. VITAMIN D [Concomitant]
  3. CALCIUM [Concomitant]
  4. INSULIN [Concomitant]
     Dosage: 28 UNITS
  5. ACTEMRA [Suspect]
     Indication: RHEUMATOID ARTHRITIS
     Route: 042
  6. FUROSEMIDE [Concomitant]
  7. SELENIUM [Concomitant]
     Dosage: DRUG NAME:VIT E
  8. RAMIPRIL [Concomitant]
  9. RABEPRAZOLE SODIUM [Concomitant]
  10. SPIRONOLACTONE [Concomitant]
  11. ALENDRONATE SODIUM [Concomitant]
     Dosage: DRUG NAME:ALENDRONATE
  12. VITAMIN E [Concomitant]
     Dosage: DRUG NAME:VIT E
  13. ACTEMRA [Suspect]
     Route: 042
  14. ASPIRIN [Concomitant]
  15. PREDNISONE TAB [Concomitant]
  16. FOLIC ACID [Concomitant]
  17. MAGNESIUM [Concomitant]
  18. BISOPROLOL FUMARATE [Concomitant]
  19. DIGOXIN [Concomitant]
  20. LIPITOR [Concomitant]

REACTIONS (10)
  - PYREXIA [None]
  - DYSPNOEA [None]
  - THROMBOSIS [None]
  - PNEUMONIA [None]
  - COUGH [None]
  - CARDIAC DISORDER [None]
  - PLEURAL EFFUSION [None]
  - RASH [None]
  - OEDEMA PERIPHERAL [None]
  - RED BLOOD CELL SEDIMENTATION RATE INCREASED [None]
